FAERS Safety Report 6475381-8 (Version None)
Quarter: 2009Q4

REPORT INFORMATION
  Report Type: 
  Country: None (occurrence: None)
  Receive Date: 20091204
  Receipt Date: 20091125
  Transmission Date: 20100525
  Serious: Yes (Other)
  Sender: FDA-Public Use
  Company Number: US-JNJCH-2009030896

PATIENT
  Age: 48 Year
  Sex: Male
  Weight: 80.7 kg

DRUGS (5)
  1. SUDAFED SINUS NIGHTTIME PLUS PAIN RELEIF [Suspect]
     Indication: SINUS DISORDER
     Dosage: TEXT:1 OR 2 PER DOSAGE 2 X DAILY
     Route: 048
     Dates: start: 19870101, end: 20030101
  2. ALL OTHER THERAPEUTIC PRODUCTS [Concomitant]
     Indication: SINUS CONGESTION
     Dosage: TEXT:1 SQUIRT PER NOSTRIL ONCE DAILY
     Route: 045
  3. FLONASE [Concomitant]
     Indication: SINUS CONGESTION
     Dosage: TEXT:1 SQUIRT PER NOSTRIL ONCE DAILY
     Route: 045
  4. ADVAIR DISKUS 100/50 [Concomitant]
     Indication: ASTHMA
     Dosage: TEXT:ONCE DAILY
     Route: 065
  5. ALBUTEROL [Concomitant]
     Indication: ASTHMA
     Dosage: TEXT:AS NEEDED
     Route: 065

REACTIONS (2)
  - ASTHMA [None]
  - RESPIRATORY DISORDER [None]
